FAERS Safety Report 4366635-X (Version None)
Quarter: 2004Q2

REPORT INFORMATION
  Report Type: 
  Country: None (occurrence: None)
  Receive Date: 20040524
  Receipt Date: 20040510
  Transmission Date: 20050107
  Serious: No
  Sender: FDA-Public Use
  Company Number: 04P-167-0260612-00

PATIENT
  Age: 62 Year
  Sex: Female
  Weight: 60 kg

DRUGS (8)
  1. HUMIRA [Suspect]
     Indication: RHEUMATOID ARTHRITIS
     Dosage: 40 MG, 1 IN 2 WK, SUBCUTANEOUS
     Route: 058
     Dates: start: 20021215, end: 20030901
  2. ROFECOXIB [Concomitant]
  3. ASPIRIN [Concomitant]
  4. ALENDRONATE SODIUM [Concomitant]
  5. OMEPRAZOLE [Concomitant]
  6. AMITRIPTYLINE HCL [Concomitant]
  7. UNSPECIFIED INHALERS [Concomitant]
  8. PREDNISOLONE [Concomitant]

REACTIONS (1)
  - SQUAMOUS CELL CARCINOMA [None]
